FAERS Safety Report 10688842 (Version 1)
Quarter: 2015Q1

REPORT INFORMATION
  Report Type: Spontaneous
  Country: DE (occurrence: DE)
  Receive Date: 20150103
  Receipt Date: 20150103
  Transmission Date: 20150720
  Serious: Yes (Hospitalization)
  Sender: FDA-Public Use
  Company Number: DE-BRISTOL-MYERS SQUIBB COMPANY-BMS-2014-004934

PATIENT
  Age: 68 Year
  Sex: Female

DRUGS (8)
  1. SAXAGLIPTIN [Suspect]
     Active Substance: SAXAGLIPTIN
     Indication: PRODUCT USED FOR UNKNOWN INDICATION
     Dosage: 5 MG, QD
     Route: 048
  2. PANTOPRAZOLE [Concomitant]
     Active Substance: PANTOPRAZOLE SODIUM
  3. SIMVASTATIN. [Concomitant]
     Active Substance: SIMVASTATIN
  4. SPIRIVA [Concomitant]
     Active Substance: TIOTROPIUM BROMIDE MONOHYDRATE
  5. BISOPROLOL [Concomitant]
     Active Substance: BISOPROLOL
  6. ALLOPURINOL. [Concomitant]
     Active Substance: ALLOPURINOL
  7. SYMBICORT [Concomitant]
     Active Substance: BUDESONIDE\FORMOTEROL FUMARATE DIHYDRATE
  8. MARCUMAR [Concomitant]
     Active Substance: PHENPROCOUMON

REACTIONS (8)
  - Pyrexia [Unknown]
  - Blood lactate dehydrogenase increased [Unknown]
  - Pruritus [Unknown]
  - Swollen tongue [Unknown]
  - Urticaria [Unknown]
  - C-reactive protein increased [Unknown]
  - Rash maculo-papular [Unknown]
  - Lymphopenia [Unknown]

NARRATIVE: CASE EVENT DATE: 20141123
